FAERS Safety Report 7410786-X (Version None)
Quarter: 2011Q2

REPORT INFORMATION
  Report Type: 
  Country: None (occurrence: None)
  Receive Date: 20110405
  Receipt Date: 20110321
  Transmission Date: 20111010
  Serious: Yes (Other)
  Sender: FDA-Public Use
  Company Number: 2011BN000024

PATIENT
  Age: 29 Month

DRUGS (2)
  1. HEPARIN [Concomitant]
  2. MELPHALAN HYDROCHLORIDE [Suspect]
     Indication: INTRAOCULAR RETINOBLASTOMA
     Dosage: 0.35 MG/KG; IART
     Route: 013

REACTIONS (4)
  - RETINAL EXUDATES [None]
  - CHORIORETINAL ATROPHY [None]
  - POLYPOIDAL CHOROIDAL VASCULOPATHY [None]
  - RETINAL ARTERY EMBOLISM [None]
